FAERS Safety Report 4852888-8 (Version None)
Quarter: 2005Q4

REPORT INFORMATION
  Report Type: 
  Country: None (occurrence: None)
  Receive Date: 20051212
  Receipt Date: 20051129
  Transmission Date: 20060501
  Serious: Yes (Hospitalization)
  Sender: FDA-Public Use
  Company Number: 2005163608

PATIENT
  Age: 80 Year
  Sex: Female

DRUGS (8)
  1. PREDNISOLONE [Suspect]
     Indication: ASTHMA
     Dosage: 5 MG (5 MG, 1 IN 1 D), ORAL
     Route: 048
     Dates: start: 20050101
  2. BENDROFLUAZIDE (BENDROFLUMETHIAZIDE) [Concomitant]
  3. AMLODIPINE [Concomitant]
  4. CANDESARTAN (CANDESARTAN) [Concomitant]
  5. LEVOTHYROXINE SODIUM [Concomitant]
  6. SALBUTAMOL (SALBUTAMOL) [Concomitant]
  7. BECLOMETHASONE (BECLOMETHASONE) [Concomitant]
  8. SIMVASTATIN [Concomitant]

REACTIONS (1)
  - HYPERGLYCAEMIA [None]
